FAERS Safety Report 5883961-3 (Version None)
Quarter: 2008Q3

REPORT INFORMATION
  Report Type: 
  Country: None (occurrence: None)
  Receive Date: 20080915
  Receipt Date: 20080902
  Transmission Date: 20090109
  Serious: Yes (Other)
  Sender: FDA-Public Use
  Company Number: FR-ROCHE-584069

PATIENT
  Sex: Female
  Weight: 52 kg

DRUGS (5)
  1. PEGASYS [Suspect]
     Indication: HEPATITIS C
     Route: 058
     Dates: start: 20080128
  2. COPEGUS [Suspect]
     Indication: HEPATITIS C
     Dosage: DOSAGE: 200 MG 5/DAY
     Route: 048
     Dates: start: 20080128
  3. ISENTRESS [Concomitant]
  4. KALETRA [Concomitant]
  5. ZIAGEN [Concomitant]

REACTIONS (3)
  - CRYING [None]
  - LOGORRHOEA [None]
  - SUICIDAL IDEATION [None]
